FAERS Safety Report 20309168 (Version 1)
Quarter: 2022Q1

REPORT INFORMATION
  Report Type: Spontaneous
  Country: AF (occurrence: AF)
  Receive Date: 20220107
  Receipt Date: 20220107
  Transmission Date: 20220423
  Serious: Yes (Other)
  Sender: FDA-Public Use
  Company Number: AF-CELGENE-AFG-20211209757

PATIENT
  Sex: Female
  Weight: 40.315 kg

DRUGS (1)
  1. POMALYST [Suspect]
     Active Substance: POMALIDOMIDE
     Indication: Plasma cell myeloma
     Dosage: 2 MILLIGRAM
     Route: 048

REACTIONS (3)
  - Thrombosis [Unknown]
  - Limb injury [Unknown]
  - Oropharyngeal pain [Unknown]
